FAERS Safety Report 4519869-5 (Version None)
Quarter: 2004Q4

REPORT INFORMATION
  Report Type: 
  Country: None (occurrence: None)
  Receive Date: 20041202
  Receipt Date: 20041202
  Transmission Date: 20050328
  Serious: Yes (Life-Threatening)
  Sender: FDA-Public Use
  Company Number: None

PATIENT
  Age: 58 Year
  Sex: Male
  Weight: 103.1 kg

DRUGS (1)
  1. IBUPROFEN [Suspect]
     Indication: MYALGIA
     Dosage: PRN ORAL
     Route: 048

REACTIONS (3)
  - DIZZINESS [None]
  - MELAENA [None]
  - UPPER GASTROINTESTINAL HAEMORRHAGE [None]
